FAERS Safety Report 6681918-6 (Version None)
Quarter: 2010Q2

REPORT INFORMATION
  Report Type: 
  Country: None (occurrence: None)
  Receive Date: 20100409
  Receipt Date: 20100405
  Transmission Date: 20101027
  Serious: Yes (Other)
  Sender: FDA-Public Use
  Company Number: BE-1181386

PATIENT
  Age: 49 Year
  Sex: Female

DRUGS (2)
  1. TRAVATAN [Suspect]
     Indication: OCULAR HYPERTENSION
     Dosage: 1 GTT QD OU, OPHTHALMIC
     Route: 047
     Dates: start: 20100309, end: 20100318
  2. PROGYNOVA (ESTRADIOL) [Concomitant]

REACTIONS (2)
  - AGEUSIA [None]
  - ANOSMIA [None]
